FAERS Safety Report 6057775-8 (Version None)
Quarter: 2009Q1

REPORT INFORMATION
  Report Type: 
  Country: None (occurrence: None)
  Receive Date: 20090129
  Receipt Date: 20090122
  Transmission Date: 20090719
  Serious: Yes (Life-Threatening, Hospitalization, Other)
  Sender: FDA-Public Use
  Company Number: PHHY2009DE02452

PATIENT
  Age: 82 Year
  Sex: Male

DRUGS (5)
  1. EXJADE [Suspect]
     Dosage: 2000 MG, QD
     Dates: start: 20080401
  2. REVLIMID [Suspect]
     Indication: MYELOFIBROSIS
     Dosage: 5 MG/DAY
     Route: 048
     Dates: start: 20080901, end: 20080921
  3. PANTOPRAZOLE [Concomitant]
     Dosage: 20 MG, QD
  4. TORSEMIDE [Concomitant]
     Dosage: 20 MG, BID
  5. ALLOPURINOL [Concomitant]
     Dosage: 300  MG/DAY

REACTIONS (23)
  - ABDOMINAL PAIN UPPER [None]
  - ABDOMINAL TENDERNESS [None]
  - ALANINE AMINOTRANSFERASE INCREASED [None]
  - AORTIC VALVE SCLEROSIS [None]
  - ASPARTATE AMINOTRANSFERASE INCREASED [None]
  - BLOOD ALKALINE PHOSPHATASE INCREASED [None]
  - BLOOD CALCIUM DECREASED [None]
  - C-REACTIVE PROTEIN INCREASED [None]
  - CHROMATURIA [None]
  - DILATATION VENTRICULAR [None]
  - EMPHYSEMA [None]
  - GAMMA-GLUTAMYLTRANSFERASE INCREASED [None]
  - HAEMOLYSIS [None]
  - HEPATOTOXICITY [None]
  - JAUNDICE [None]
  - MITRAL VALVE INCOMPETENCE [None]
  - MITRAL VALVE SCLEROSIS [None]
  - OEDEMA PERIPHERAL [None]
  - OSTEOPOROSIS [None]
  - SPLENOMEGALY [None]
  - TRICUSPID VALVE INCOMPETENCE [None]
  - VERTEBRAL WEDGING [None]
  - YELLOW SKIN [None]
